FAERS Safety Report 23020103 (Version 1)
Quarter: 2023Q4

REPORT INFORMATION
  Report Type: Spontaneous
  Country: US (occurrence: US)
  Receive Date: 20231003
  Receipt Date: 20231003
  Transmission Date: 20240109
  Serious: Yes (Disabling, Other)
  Sender: FDA-Public Use
  Company Number: US-SA-SAC20230928000825

PATIENT
  Age: 61 Year
  Sex: Female

DRUGS (9)
  1. KEVZARA [Suspect]
     Active Substance: SARILUMAB
     Indication: Drug therapy
     Dosage: 1 DF, QOW
     Route: 058
     Dates: start: 20230915
  2. BIOTIN [Concomitant]
     Active Substance: BIOTIN
     Dosage: UNK
  3. FOLIC ACID [Concomitant]
     Active Substance: FOLIC ACID
     Dosage: UNK
  4. HYDROCHLOROTHIAZIDE [Concomitant]
     Active Substance: HYDROCHLOROTHIAZIDE
     Dosage: UNK
  5. LEVOTHYROXINE [Concomitant]
     Active Substance: LEVOTHYROXINE
     Dosage: UNK
  6. LORATADINE [Concomitant]
     Active Substance: LORATADINE
     Dosage: UNK
  7. LOSARTAN POTASSIUM [Concomitant]
     Active Substance: LOSARTAN POTASSIUM
     Dosage: UNK
  8. VITAMIN D NOS [Concomitant]
     Active Substance: VITAMIN D NOS
     Dosage: 2000
  9. ZINC [Concomitant]
     Active Substance: ZINC
     Dosage: UNK

REACTIONS (11)
  - Loss of personal independence in daily activities [Unknown]
  - Cataract [Unknown]
  - Sjogren^s syndrome [Unknown]
  - Autoimmune thyroiditis [Unknown]
  - Gait disturbance [Unknown]
  - Pain in extremity [Unknown]
  - Thalassaemia [Unknown]
  - Condition aggravated [Recovered/Resolved]
  - Dysstasia [Unknown]
  - Sinusitis [Unknown]
  - Hypoacusis [Unknown]

NARRATIVE: CASE EVENT DATE: 20230901
